FAERS Safety Report 24222631 (Version 3)
Quarter: 2024Q4

REPORT INFORMATION
  Report Type: Spontaneous
  Country: US (occurrence: US)
  Receive Date: 20240819
  Receipt Date: 20241118
  Transmission Date: 20250115
  Serious: No
  Sender: SANOFI AVENTIS
  Company Number: US-SA-SAC20240813000560

PATIENT
  Age: 50 Year
  Sex: Female

DRUGS (1)
  1. DUPIXENT [Suspect]
     Active Substance: DUPILUMAB
     Indication: Neurodermatitis
     Dosage: 300MG QOW
     Route: 058
     Dates: start: 202207

REACTIONS (4)
  - Palpitations [Unknown]
  - Vision blurred [Unknown]
  - Headache [Unknown]
  - Injection site swelling [Recovered/Resolved]
